FAERS Safety Report 8847083 (Version 1)
Quarter: 2012Q4

REPORT INFORMATION
  Report Type: Spontaneous
  Country: BR (occurrence: None)
  Receive Date: 20121016
  Receipt Date: 20121016
  Transmission Date: 20130627
  Serious: Yes (Hospitalization, Other)
  Sender: FDA-Public Use
  Company Number: ENTC2012-0466

PATIENT
  Age: 85 Year
  Sex: Male

DRUGS (8)
  1. STALEVO (LEVODOPA, CARBIDOPA, ENTACAPONE) [Suspect]
     Indication: PARKINSON^S DISEASE
     Route: 048
  2. STALEVO (LEVODOPA, CARBIDOPA, ENTACAPONE) [Suspect]
     Indication: PARKINSON^S DISEASE
     Route: 048
  3. STALEVO (LEVODOPA, CARBIDOPA, ENTACAPONE) [Suspect]
     Indication: PARKINSON^S DISEASE
     Route: 048
     Dates: start: 20121004
  4. SYNTHROID [Concomitant]
  5. PANTOPRAZOLE [Concomitant]
  6. CLOPIDOGREL [Concomitant]
  7. AMIODARONE [Concomitant]
  8. ATORVASTATIN [Concomitant]

REACTIONS (5)
  - Wrong technique in drug usage process [None]
  - Ischaemic stroke [None]
  - Dysphagia [None]
  - Choking [None]
  - Mobility decreased [None]
